FAERS Safety Report 5513974-2 (Version None)
Quarter: 2007Q4

REPORT INFORMATION
  Report Type: 
  Country: None (occurrence: None)
  Receive Date: 20071106
  Receipt Date: 20070509
  Transmission Date: 20080405
  Serious: Yes (Other)
  Sender: FDA-Public Use
  Company Number: US-JNJFOC-20070502348

PATIENT
  Sex: Female
  Weight: 90.7194 kg

DRUGS (2)
  1. MOTRIN [Suspect]
     Indication: PAIN
     Dosage: 800 MG
  2. MOTRIN IB [Suspect]
     Indication: PAIN
     Dosage: 1200 MG, 2 IN 1 DAY
     Dates: start: 20070401, end: 20070401

REACTIONS (3)
  - DRUG INEFFECTIVE [None]
  - INTENTIONAL DRUG MISUSE [None]
  - LIVER FUNCTION TEST ABNORMAL [None]
